FAERS Safety Report 14123157 (Version 6)
Quarter: 2022Q4

REPORT INFORMATION
  Report Type: Other
  Country: US (occurrence: None)
  Receive Date: 20171025
  Receipt Date: 20221129
  Transmission Date: 20230113
  Serious: Yes (Hospitalization)
  Sender: FDA-Public Use
  Company Number: US-ROCHE-1958822

PATIENT
  Sex: Female
  Weight: 83.990 kg

DRUGS (10)
  1. TOCILIZUMAB [Suspect]
     Active Substance: TOCILIZUMAB
     Indication: Juvenile idiopathic arthritis
     Route: 042
     Dates: start: 20150701, end: 20170530
  2. TOCILIZUMAB [Suspect]
     Active Substance: TOCILIZUMAB
     Indication: Juvenile idiopathic arthritis
  3. ACETAMINOPHEN [Concomitant]
     Active Substance: ACETAMINOPHEN
     Indication: Juvenile idiopathic arthritis
     Route: 048
     Dates: start: 20170502
  4. ADALAT [Concomitant]
     Active Substance: NIFEDIPINE
     Indication: Hypertension
     Route: 048
     Dates: start: 20170502, end: 20170613
  5. ADALAT [Concomitant]
     Active Substance: NIFEDIPINE
     Route: 048
     Dates: start: 20170614, end: 20170622
  6. ASPIRIN [Concomitant]
     Active Substance: ASPIRIN
     Dosage: FOR PREVENTION OF MISCARRIAGE
     Route: 048
     Dates: start: 20170530, end: 20170725
  7. ASPIRIN [Concomitant]
     Active Substance: ASPIRIN
     Route: 048
     Dates: start: 20170926
  8. CELEBREX [Concomitant]
     Active Substance: CELECOXIB
     Indication: Juvenile idiopathic arthritis
     Route: 048
     Dates: start: 20170502, end: 20170530
  9. PREDNISOLONE ACETATE [Concomitant]
     Active Substance: PREDNISOLONE ACETATE
     Indication: Uveitis
     Route: 048
     Dates: start: 20170901
  10. PROMETRIUM [Concomitant]
     Active Substance: PROGESTERONE
     Dosage: FOR PREVENTION OF MISCARRIAGE
     Route: 048
     Dates: start: 20170530, end: 20170725

REACTIONS (2)
  - Subchorionic haematoma [Unknown]
  - Maternal exposure during pregnancy [Unknown]

NARRATIVE: CASE EVENT DATE: 20170725
